FAERS Safety Report 14171611 (Version 8)
Quarter: 2019Q1

REPORT INFORMATION
  Report Type: Report from Study
  Country: AT (occurrence: AT)
  Receive Date: 20171108
  Receipt Date: 20190129
  Transmission Date: 20190417
  Serious: Yes (Hospitalization, Other)
  Sender: FDA-Public Use
  Company Number: AT-INCYTE CORPORATION-2017IN009537

PATIENT

DRUGS (1)
  1. JAKAVI [Suspect]
     Active Substance: RUXOLITINIB
     Indication: MYELOFIBROSIS
     Dosage: 15 MG, QD
     Route: 048
     Dates: start: 20170512

REACTIONS (6)
  - Lymphadenitis [Unknown]
  - Non-Hodgkin^s lymphoma [Recovered/Resolved]
  - Portal hypertension [Unknown]
  - Lymph node abscess [Unknown]
  - Second primary malignancy [Recovering/Resolving]
  - Splenomegaly [Unknown]

NARRATIVE: CASE EVENT DATE: 20171015
